FAERS Safety Report 26143921 (Version 1)
Quarter: 2025Q4

REPORT INFORMATION
  Report Type: Spontaneous
  Country: US (occurrence: US)
  Receive Date: 20251211
  Receipt Date: 20251211
  Transmission Date: 20260117
  Serious: Yes (Hospitalization, Other)
  Sender: RANBAXY
  Company Number: US-SUN PHARMACEUTICAL INDUSTRIES INC-2025R1-533282

PATIENT
  Age: 89 Year
  Sex: Female
  Weight: 34.3 kg

DRUGS (2)
  1. ACETAMINOPHEN [Suspect]
     Active Substance: ACETAMINOPHEN
     Indication: Cystitis
     Dosage: 1000 MILLIGRAM, 1DOSE/8HR
     Route: 065
  2. CEPHALEXIN [Concomitant]
     Active Substance: CEPHALEXIN
     Indication: Cystitis
     Dosage: UNK
     Route: 065

REACTIONS (6)
  - Accidental overdose [Unknown]
  - Hepatic failure [Unknown]
  - Ischaemic hepatitis [Unknown]
  - Toxicity to various agents [Unknown]
  - Encephalopathy [Unknown]
  - Condition aggravated [Unknown]
